FAERS Safety Report 7276525-0 (Version None)
Quarter: 2011Q1

REPORT INFORMATION
  Report Type: 
  Country: None (occurrence: None)
  Receive Date: 20110204
  Receipt Date: 20110125
  Transmission Date: 20110831
  Serious: Yes (Other)
  Sender: FDA-Public Use
  Company Number: FR-PFIZER INC-2010165446

PATIENT
  Age: 43 Year
  Sex: Male

DRUGS (1)
  1. ACTIFED [Suspect]
     Indication: SELF-MEDICATION

REACTIONS (3)
  - OVERDOSE [None]
  - CHEST PAIN [None]
  - DYSPNOEA [None]
